FAERS Safety Report 16696866 (Version 5)
Quarter: 2020Q2

REPORT INFORMATION
  Report Type: Spontaneous
  Country: CA (occurrence: CA)
  Receive Date: 20190813
  Receipt Date: 20200409
  Transmission Date: 20200713
  Serious: Yes (Other)
  Sender: FDA-Public Use
  Company Number: CA-ROCHE-2378298

PATIENT
  Age: 69 Year
  Sex: Female

DRUGS (8)
  1. BILASTINE [Concomitant]
     Active Substance: BILASTINE
     Indication: URTICARIA
     Route: 065
     Dates: start: 20190425, end: 20190517
  2. AERIUS (DESLORATADINE) [Concomitant]
     Active Substance: DESLORATADINE
     Indication: SEASONAL ALLERGY
     Dosage: 5 MG, UNK
     Route: 048
  3. CLARITIN [Concomitant]
     Active Substance: LORATADINE
     Indication: SEASONAL ALLERGY
     Route: 048
  4. HYDROCORTISONE. [Concomitant]
     Active Substance: HYDROCORTISONE
     Indication: URTICARIA
     Dosage: UNK
     Route: 061
  5. ALLEGRA [Concomitant]
     Active Substance: FEXOFENADINE HYDROCHLORIDE
     Indication: SEASONAL ALLERGY
     Route: 048
  6. XOLAIR [Suspect]
     Active Substance: OMALIZUMAB
     Indication: CHRONIC SPONTANEOUS URTICARIA
     Route: 058
     Dates: start: 20190729
  7. REACTINE [CETIRIZINE HYDROCHLORIDE] [Concomitant]
     Active Substance: CETIRIZINE HYDROCHLORIDE
     Indication: SEASONAL ALLERGY
     Route: 048
  8. PREDNISONE. [Concomitant]
     Active Substance: PREDNISONE
     Indication: PRODUCT USED FOR UNKNOWN INDICATION
     Route: 065

REACTIONS (9)
  - Influenza [Unknown]
  - Urticaria [Unknown]
  - Sneezing [Recovering/Resolving]
  - Sinus headache [Recovering/Resolving]
  - Nasopharyngitis [Not Recovered/Not Resolved]
  - Hypersensitivity [Recovering/Resolving]
  - Throat irritation [Recovering/Resolving]
  - Oropharyngeal pain [Recovering/Resolving]
  - Pruritus [Unknown]

NARRATIVE: CASE EVENT DATE: 20190730
